FAERS Safety Report 16692033 (Version 1)
Quarter: 2019Q3

REPORT INFORMATION
  Report Type: Spontaneous
  Country: US (occurrence: US)
  Receive Date: 20190812
  Receipt Date: 20190812
  Transmission Date: 20191004
  Serious: No
  Sender: FDA-Public Use
  Company Number: US-MYLANLABS-2019M1069904

PATIENT
  Sex: Female
  Weight: 56 kg

DRUGS (3)
  1. METOPROLOL TARTRATE. [Concomitant]
     Active Substance: METOPROLOL TARTRATE
     Indication: HYPERTENSION
     Dosage: 25 MILLIGRAM, BID
     Route: 048
     Dates: start: 20190225, end: 20190721
  2. METOPROLOL TARTRATE. [Concomitant]
     Active Substance: METOPROLOL TARTRATE
     Dosage: 50 MILLIGRAM, BID
     Route: 048
  3. SPIRONOLACTONE TABLETS, USP [Suspect]
     Active Substance: SPIRONOLACTONE
     Indication: DIURETIC THERAPY
     Dosage: 25 MILLIGRAM, BID
     Route: 048
     Dates: start: 201904, end: 20190721

REACTIONS (8)
  - Constipation [Recovered/Resolved]
  - Gait disturbance [Recovering/Resolving]
  - Feeling abnormal [Recovering/Resolving]
  - Urine output increased [Recovering/Resolving]
  - Weight decreased [Unknown]
  - Neck pain [Unknown]
  - Insomnia [Unknown]
  - Urine analysis abnormal [Unknown]

NARRATIVE: CASE EVENT DATE: 2019
